FAERS Safety Report 23494623 (Version 2)
Quarter: 2024Q1

REPORT INFORMATION
  Report Type: Report from Study
  Country: GT (occurrence: GT)
  Receive Date: 20240207
  Receipt Date: 20240211
  Transmission Date: 20240410
  Serious: Yes (Death, Other)
  Sender: FDA-Public Use
  Company Number: GT-BAYER-2024A004037

PATIENT
  Age: 87 Year
  Sex: Female

DRUGS (1)
  1. VENTAVIS [Suspect]
     Active Substance: ILOPROST
     Indication: Pulmonary arterial hypertension
     Dosage: UNK, TID (1 AMPOULE)?THERAPY END DATE: /JAN/2024
     Route: 055
     Dates: start: 20140519

REACTIONS (2)
  - Cardiac failure [Fatal]
  - Nasopharyngitis [Recovering/Resolving]

NARRATIVE: CASE EVENT DATE: 20240102
